FAERS Safety Report 9535000 (Version 2)
Quarter: 2013Q4

REPORT INFORMATION
  Report Type: Spontaneous
  Country: BR (occurrence: BR)
  Receive Date: 20130918
  Receipt Date: 20131021
  Transmission Date: 20140711
  Serious: Yes (Death, Hospitalization, Other)
  Sender: FDA-Public Use
  Company Number: BR-PFIZER INC-2013265041

PATIENT
  Age: 91 Year
  Sex: Female
  Weight: 67 kg

DRUGS (5)
  1. XALATAN [Suspect]
     Indication: GLAUCOMA
     Dosage: 3 UG (ONE DROP IN EACH EYE), 1X/DAY
     Route: 047
     Dates: start: 20040422
  2. AMLODIPINE [Concomitant]
     Indication: HYPERTENSION
     Dosage: ONE TABLET DAILY
     Dates: start: 2012
  3. ASPIRINA [Concomitant]
     Dosage: ONE TABLET DAILY
     Dates: start: 2011
  4. MICARDIS [Concomitant]
     Indication: HYPERTENSION
     Dosage: ONE TABLET DAILY
     Dates: start: 2011
  5. FUROSEMIDE [Concomitant]
     Indication: HYPERTENSION
     Dosage: ONE TABLET DAILY

REACTIONS (1)
  - Cerebrovascular accident [Fatal]
